FAERS Safety Report 25000416 (Version 3)
Quarter: 2025Q2

REPORT INFORMATION
  Report Type: Spontaneous
  Country: US (occurrence: US)
  Receive Date: 20250222
  Receipt Date: 20250619
  Transmission Date: 20250717
  Serious: No
  Sender: SANOFI AVENTIS
  Company Number: US-SA-2025SA051132

PATIENT
  Age: 40 Year
  Sex: Female

DRUGS (22)
  1. REZUROCK [Suspect]
     Active Substance: BELUMOSUDIL
     Indication: Acute graft versus host disease
     Dosage: 200 MG, QD
     Route: 048
  2. ACYCLOVIR [Concomitant]
     Active Substance: ACYCLOVIR
  3. ACYCLOVIR [Concomitant]
     Active Substance: ACYCLOVIR
  4. AMLODIPINE [Concomitant]
     Active Substance: AMLODIPINE BESYLATE
  5. AMLODIPINE [Concomitant]
     Active Substance: AMLODIPINE BESYLATE
  6. ERYTHROMYCIN [Concomitant]
     Active Substance: ERYTHROMYCIN
  7. ERYTHROMYCIN [Concomitant]
     Active Substance: ERYTHROMYCIN
  8. FAMOTIDINE [Concomitant]
     Active Substance: FAMOTIDINE
  9. FAMOTIDINE [Concomitant]
     Active Substance: FAMOTIDINE
  10. FLUTICASONE [Concomitant]
     Active Substance: FLUTICASONE
  11. MONTELUKAST [Concomitant]
     Active Substance: MONTELUKAST
  12. PREDNISONE [Concomitant]
     Active Substance: PREDNISONE
  13. MAGNESIUM OXIDE [Concomitant]
     Active Substance: MAGNESIUM OXIDE
  14. TACROLIMUS [Concomitant]
     Active Substance: TACROLIMUS
  15. GUAIFENESIN [Concomitant]
     Active Substance: GUAIFENESIN
  16. MAGNESIUM [Concomitant]
     Active Substance: MAGNESIUM
  17. METOPROLOL TARTRATE [Concomitant]
     Active Substance: METOPROLOL TARTRATE
  18. LISINOPRIL [Concomitant]
     Active Substance: LISINOPRIL
  19. BENZONATATE [Concomitant]
     Active Substance: BENZONATATE
  20. BENZONATATE [Concomitant]
     Active Substance: BENZONATATE
  21. ACETAMINOPHEN\OXYCODONE HYDROCHLORIDE [Concomitant]
     Active Substance: ACETAMINOPHEN\OXYCODONE HYDROCHLORIDE
  22. ACETAMINOPHEN\OXYCODONE HYDROCHLORIDE\OXYCODONE TEREPHTHALATE [Concomitant]
     Active Substance: ACETAMINOPHEN\OXYCODONE HYDROCHLORIDE\OXYCODONE TEREPHTHALATE

REACTIONS (4)
  - Pruritus [Unknown]
  - Rash [Unknown]
  - Peripheral swelling [Unknown]
  - Product use in unapproved indication [Unknown]
